FAERS Safety Report 25435380 (Version 2)
Quarter: 2025Q3

REPORT INFORMATION
  Report Type: Spontaneous
  Country: JP (occurrence: JP)
  Receive Date: 20250613
  Receipt Date: 20250709
  Transmission Date: 20251020
  Serious: No
  Sender: AMGEN
  Company Number: JP-AMGEN-JPNSP2025114808

PATIENT

DRUGS (1)
  1. EVENITY [Suspect]
     Active Substance: ROMOSOZUMAB-AQQG
     Indication: Osteoporosis
     Dosage: 210 MILLIGRAM, QMO
     Route: 058

REACTIONS (1)
  - Therapy interrupted [Unknown]
